FAERS Safety Report 10141799 (Version 3)
Quarter: 2015Q3

REPORT INFORMATION
  Report Type: Report from Study
  Country: CA (occurrence: CA)
  Receive Date: 20140429
  Receipt Date: 20150810
  Transmission Date: 20151125
  Serious: Yes (Death, Hospitalization)
  Sender: FDA-Public Use
  Company Number: CA-ABBVIE-13P-028-1099605-00

PATIENT
  Sex: Female

DRUGS (1)
  1. HUMIRA [Suspect]
     Active Substance: ADALIMUMAB
     Indication: PRODUCT USED FOR UNKNOWN INDICATION
     Route: 058
     Dates: start: 20120719

REACTIONS (4)
  - Cardiac disorder [Fatal]
  - Gastric infection [Fatal]
  - Heart rate decreased [Fatal]
  - Hospitalisation [Fatal]

NARRATIVE: CASE EVENT DATE: 2013
